FAERS Safety Report 17206339 (Version 3)
Quarter: 2020Q4

REPORT INFORMATION
  Report Type: Spontaneous
  Country: US (occurrence: US)
  Receive Date: 20191227
  Receipt Date: 20201012
  Transmission Date: 20210113
  Serious: Yes (Disabling)
  Sender: FDA-Public Use
  Company Number: US-TEVA-2019-US-1160667

PATIENT
  Age: 56 Year
  Sex: Female
  Weight: 70.6 kg

DRUGS (19)
  1. DOCETAXEL SANOFI-AVENTIS [Suspect]
     Active Substance: DOCETAXEL
     Dosage: DOCETAXEL 80MG/ML
     Route: 042
     Dates: start: 20150623, end: 20150804
  2. DOCETAXEL SANOFI-AVENTIS [Suspect]
     Active Substance: DOCETAXEL
     Dosage: DOCETAXEL 20MG/ML
     Route: 042
     Dates: start: 20150804, end: 20150804
  3. PERTUZUMAB. [Suspect]
     Active Substance: PERTUZUMAB
     Indication: BREAST CANCER
     Dosage: EVERY 3 WEEKS FOR 6 CYCLES.
     Route: 042
     Dates: start: 20150421, end: 20150804
  4. TRASTUZUMAB. [Suspect]
     Active Substance: TRASTUZUMAB
     Indication: BREAST CANCER
     Dosage: EVERY 3 WEEKS 6 CYCLES.
     Route: 042
     Dates: start: 20150421, end: 20150804
  5. ONDANSETRON [Concomitant]
     Active Substance: ONDANSETRON
     Dosage: ADMINISTERED ON 21-APR-2015(16 MG), 30-APR-2015 (8MG), 12-MAY-2015(16 MG), 04-AUG-2015(16MG).
     Route: 042
  6. FOSAPREPITANT [Concomitant]
     Active Substance: FOSAPREPITANT
     Route: 042
  7. DOCETAXEL SANOFI-AVENTIS [Suspect]
     Active Substance: DOCETAXEL
     Dosage: DOCETAXEL 20MG/ML
     Route: 042
     Dates: start: 20150602, end: 20150623
  8. NEULASTA [Concomitant]
     Active Substance: PEGFILGRASTIM
     Dosage: ADMINISTERED ON 13-MAY-2015, 03-JUN-2015, 24-JUN-2015, 15-JUL-2015
     Route: 058
  9. MAGNESIUM SULFATE. [Concomitant]
     Active Substance: MAGNESIUM SULFATE
     Route: 042
  10. SODIUM CHLORIDE 0.9% [Concomitant]
     Active Substance: SODIUM CHLORIDE
     Route: 042
  11. PARAPLATIN [Suspect]
     Active Substance: CARBOPLATIN
     Indication: BREAST CANCER
     Dosage: EVERY 3 WEEKS 6 CYCLES.
     Route: 042
     Dates: start: 20150421, end: 20150804
  12. NEUPOGEN [Concomitant]
     Active Substance: FILGRASTIM
     Dosage: 480 MCG, ADMINISTERED ON 30-APR-2015, 01-MAY-2015  AND 12-MAY-2015
     Route: 042
  13. DOCETAXEL ACTAVIS [Suspect]
     Active Substance: DOCETAXEL
     Dosage: DOCETAXEL 140MG/7 ML
     Route: 042
     Dates: start: 20150714, end: 20150714
  14. POTASSIUM CHLORIDE. [Concomitant]
     Active Substance: POTASSIUM CHLORIDE
     Dosage: 40 MEQ
     Route: 042
  15. DOCETAXEL ACTAVIS [Suspect]
     Active Substance: DOCETAXEL
     Indication: BREAST CANCER
     Dosage: DOCETAXEL 140MG/7 ML
     Route: 040
     Dates: start: 20150602, end: 20150602
  16. DOCETAXEL SANOFI-AVENTIS [Suspect]
     Active Substance: DOCETAXEL
     Indication: BREAST CANCER
     Dosage: DOCETAXEL 80MG/ML
     Route: 042
     Dates: start: 20150421, end: 20150512
  17. DEXAMETHASONE. [Concomitant]
     Active Substance: DEXAMETHASONE
     Dosage: 12 MG
     Route: 042
     Dates: start: 20150421, end: 20150804
  18. PALONOSETRON. [Concomitant]
     Active Substance: PALONOSETRON HYDROCHLORIDE
     Dosage: 0.25 MG, ADMINISTERED ON 12-MAY-2015, 03-JUN-2015, 09-JUN-2015, 23-JUN-2015, 14-JUL-2015
     Route: 042
  19. POTASSIUM CHLORIDE. [Concomitant]
     Active Substance: POTASSIUM CHLORIDE
     Dosage: 20 MEQ
     Route: 042

REACTIONS (20)
  - Alopecia totalis [Not Recovered/Not Resolved]
  - Essential hypertension [Unknown]
  - Hair disorder [Not Recovered/Not Resolved]
  - Oropharyngeal pain [Unknown]
  - Vomiting [Recovered/Resolved]
  - Paraesthesia [Unknown]
  - Rhinorrhoea [Unknown]
  - Hypoaesthesia [Unknown]
  - Madarosis [Not Recovered/Not Resolved]
  - Asthenia [Recovered/Resolved]
  - Anaemia [Unknown]
  - Peripheral motor neuropathy [Not Recovered/Not Resolved]
  - Peripheral sensory neuropathy [Not Recovered/Not Resolved]
  - Diarrhoea [Recovered/Resolved]
  - Dysaesthesia [Not Recovered/Not Resolved]
  - Paraesthesia [Not Recovered/Not Resolved]
  - Fatigue [Unknown]
  - Hypercholesterolaemia [Unknown]
  - Nausea [Recovered/Resolved]
  - Muscle spasms [Unknown]

NARRATIVE: CASE EVENT DATE: 2015
